FAERS Safety Report 9116635 (Version 1)
Quarter: 2013Q1

REPORT INFORMATION
  Report Type: Spontaneous
  Country: US (occurrence: US)
  Receive Date: 20130225
  Receipt Date: 20130225
  Transmission Date: 20140127
  Serious: Yes (Other)
  Sender: FDA-Public Use
  Company Number: PHEH2013US004524

PATIENT
  Sex: Female

DRUGS (6)
  1. TEKTURNA [Suspect]
  2. LYRICA [Suspect]
  3. CYMBALTA [Suspect]
  4. SPIRONOLACTONE [Concomitant]
     Dosage: 0.5 DF (25 MG EACH), DAILY
  5. CLONIDINE [Concomitant]
     Dosage: 0.2 MG, PRN
  6. BYSTOLIC [Concomitant]
     Indication: HEART RATE ABNORMAL
     Dosage: 5 MG, BID

REACTIONS (10)
  - Heart valve incompetence [Unknown]
  - Jaw disorder [Unknown]
  - Head injury [Unknown]
  - Neck injury [Unknown]
  - Back injury [Unknown]
  - Limb injury [Unknown]
  - Fall [Unknown]
  - Clumsiness [Unknown]
  - Local swelling [Unknown]
  - Blood pressure increased [Unknown]
